FAERS Safety Report 7795658-3 (Version None)
Quarter: 2011Q4

REPORT INFORMATION
  Report Type: 
  Country: None (occurrence: None)
  Receive Date: 20111004
  Receipt Date: 20110922
  Transmission Date: 20120403
  Serious: Yes (Hospitalization)
  Sender: FDA-Public Use
  Company Number: JP-GLAXOSMITHKLINE-B0750164A

PATIENT
  Age: 21 Year
  Sex: Female

DRUGS (4)
  1. LAMICTAL [Suspect]
     Indication: BIPOLAR DISORDER
     Dosage: 12.5MG PER DAY
     Route: 048
     Dates: start: 20110903
  2. SEROQUEL [Concomitant]
     Route: 048
  3. DEPAKENE [Concomitant]
     Route: 048
  4. LEVOTOMIN [Concomitant]

REACTIONS (3)
  - HYPERTHERMIA [None]
  - DRUG ERUPTION [None]
  - ERYTHEMA [None]
